FAERS Safety Report 9302997 (Version 1)
Quarter: 2013Q2

REPORT INFORMATION
  Report Type: Spontaneous
  Country: DE (occurrence: DE)
  Receive Date: 20130522
  Receipt Date: 20130522
  Transmission Date: 20140414
  Serious: Yes (Hospitalization)
  Sender: FDA-Public Use
  Company Number: DE-PFIZER INC-2013153519

PATIENT
  Age: 66 Year
  Sex: Female
  Weight: 45 kg

DRUGS (1)
  1. CARBOPLATIN [Suspect]
     Indication: OVARIAN CANCER
     Dosage: 130 MG, UNK
     Route: 042

REACTIONS (6)
  - Cardiovascular disorder [Unknown]
  - Chills [Unknown]
  - Dyspnoea [Unknown]
  - Flushing [Unknown]
  - Hypersensitivity [Unknown]
  - Vomiting [Unknown]
